FAERS Safety Report 21766624 (Version 1)
Quarter: 2022Q4

REPORT INFORMATION
  Report Type: Report from Study
  Country: ES (occurrence: ES)
  Receive Date: 20221222
  Receipt Date: 20221222
  Transmission Date: 20230112
  Serious: Yes (Other)
  Sender: FDA-Public Use
  Company Number: ES-PFIZER INC-202201378582

PATIENT
  Age: 59 Year

DRUGS (4)
  1. CARBOPLATIN [Suspect]
     Active Substance: CARBOPLATIN
     Indication: Squamous cell carcinoma of head and neck
     Dosage: INITIAL DOSE, AUC 4 552 MG/D (302 MG/M2), 6 CYCLES
  2. PACLITAXEL [Suspect]
     Active Substance: PACLITAXEL
     Indication: Squamous cell carcinoma of head and neck
     Dosage: INITIAL DOSE, 150 MG/M2 (240 MG/D): 150 MG/M2, 6 CYCLES
  3. PEMBROLIZUMAB [Suspect]
     Active Substance: PEMBROLIZUMAB
     Indication: Squamous cell carcinoma of head and neck
     Dosage: 200 MG/M2, 6 CYCLES
     Route: 042
  4. PEMBROLIZUMAB [Suspect]
     Active Substance: PEMBROLIZUMAB
     Dosage: 200 MG/M2, MAINTENANCE, 1 CYCLE
     Route: 042

REACTIONS (3)
  - Neuropathy peripheral [Unknown]
  - Tumour ulceration [Unknown]
  - Infected neoplasm [Unknown]
